FAERS Safety Report 8814679 (Version 2)
Quarter: 2012Q4

REPORT INFORMATION
  Report Type: Spontaneous
  Country: JP (occurrence: None)
  Receive Date: 20120926
  Receipt Date: 20121010
  Transmission Date: 20130627
  Serious: Yes (Hospitalization)
  Sender: FDA-Public Use
  Company Number: JP-2012-16320

PATIENT
  Age: 56 Year
  Sex: Female
  Weight: 80 kg

DRUGS (6)
  1. SAMSCA [Suspect]
     Indication: CARDIAC FAILURE CONGESTIVE
     Route: 048
     Dates: start: 20120902, end: 20120902
  2. LASIX [Concomitant]
  3. PREDOPA (DOPAMINE HYDROCHLORIDE) INJECTION [Concomitant]
  4. DOBUTAMINE (DOBUTAMINE HYDROCHLORIDE) INJECTION [Concomitant]
  5. ISOTONIC SODIUM CHLORIDE SOLUTION (SODIUM CHLORIDE) INJECTION [Concomitant]
  6. SIGMART (NICORANDIL) INJECTION [Concomitant]

REACTIONS (2)
  - Hypernatraemia [None]
  - Depressed level of consciousness [None]
